FAERS Safety Report 11670066 (Version 2)
Quarter: 2015Q4

REPORT INFORMATION
  Report Type: Spontaneous
  Country: US (occurrence: US)
  Receive Date: 20151027
  Receipt Date: 20151104
  Transmission Date: 20160304
  Serious: No
  Sender: FDA-Public Use
  Company Number: US-ELI_LILLY_AND_COMPANY-US200912006303

PATIENT

DRUGS (2)
  1. FORTEO [Suspect]
     Active Substance: TERIPARATIDE
     Indication: OSTEOPOROSIS
     Dosage: 20 UG, DAILY (1/D)
     Dates: start: 2009
  2. FORTEO [Suspect]
     Active Substance: TERIPARATIDE
     Dosage: 20 UG, QD

REACTIONS (6)
  - Gastroenteritis viral [Unknown]
  - Nasopharyngitis [Unknown]
  - Weight increased [Unknown]
  - Injection site pruritus [Not Recovered/Not Resolved]
  - Food craving [Unknown]
  - Malaise [Unknown]

NARRATIVE: CASE EVENT DATE: 2009
